FAERS Safety Report 5130235-4 (Version None)
Quarter: 2006Q4

REPORT INFORMATION
  Report Type: 
  Country: None (occurrence: None)
  Receive Date: 20061019
  Receipt Date: 20061010
  Transmission Date: 20070319
  Serious: Yes (Death, Life-Threatening)
  Sender: FDA-Public Use
  Company Number: FR-JNJFOC-20061003148

PATIENT
  Age: 68 Year
  Sex: Female

DRUGS (5)
  1. CONTRAMAL [Suspect]
     Indication: DRUG USE FOR UNKNOWN INDICATION
     Route: 065
     Dates: start: 20060727, end: 20060808
  2. PREVISCAN [Suspect]
     Indication: PULMONARY EMBOLISM
     Route: 048
     Dates: start: 20060705, end: 20060808
  3. LOXEN [Concomitant]
     Indication: HYPERTENSION
     Route: 065
  4. DERMOVAL [Concomitant]
     Indication: PEMPHIGOID
     Route: 065
  5. LOVENOX [Concomitant]
     Route: 065

REACTIONS (5)
  - ENCEPHALOPATHY [None]
  - HEPATITIS CHOLESTATIC [None]
  - METASTASES TO LIVER [None]
  - PNEUMONIA [None]
  - SEPSIS [None]
